FAERS Safety Report 16748876 (Version 2)
Quarter: 2019Q3

REPORT INFORMATION
  Report Type: Spontaneous
  Country: JP (occurrence: JP)
  Receive Date: 20190828
  Receipt Date: 20190913
  Transmission Date: 20191005
  Serious: Yes (Other)
  Sender: FDA-Public Use
  Company Number: JP-009507513-1908JPN002420J

PATIENT

DRUGS (2)
  1. BELSOMRA [Suspect]
     Active Substance: SUVOREXANT
     Indication: INSOMNIA
     Dosage: UNK
     Route: 048
  2. ROZEREM [Suspect]
     Active Substance: RAMELTEON
     Dosage: UNK
     Route: 048

REACTIONS (1)
  - Delirium [Unknown]
